FAERS Safety Report 14708465 (Version 1)
Quarter: 2018Q2

REPORT INFORMATION
  Report Type: Spontaneous
  Country: US (occurrence: US)
  Receive Date: 20180403
  Receipt Date: 20180403
  Transmission Date: 20180711
  Serious: No
  Sender: FDA-Public Use
  Company Number: US-JNJFOC-20180324153

PATIENT
  Age: 91 Year
  Sex: Female
  Weight: 71.22 kg

DRUGS (1)
  1. TYLENOL EXTRA STRENGTH [Suspect]
     Active Substance: ACETAMINOPHEN
     Indication: GINGIVAL PAIN
     Route: 048
     Dates: start: 20180316

REACTIONS (1)
  - Drug ineffective [Unknown]
